FAERS Safety Report 11390124 (Version 2)
Quarter: 2015Q3

REPORT INFORMATION
  Report Type: Spontaneous
  Country: FR (occurrence: FR)
  Receive Date: 20150818
  Receipt Date: 20150825
  Transmission Date: 20151125
  Serious: Yes (Hospitalization)
  Sender: FDA-Public Use
  Company Number: FR-UCBSA-2015026018

PATIENT
  Age: 55 Year
  Sex: Female

DRUGS (9)
  1. INEXIUM [Suspect]
     Active Substance: ESOMEPRAZOLE
     Indication: GASTRIC DISORDER
     Dosage: 20 MG, ONCE DAILY (QD)
     Route: 048
  2. RISPERDAL [Suspect]
     Active Substance: RISPERIDONE
     Indication: BIPOLAR DISORDER
     Dosage: 1 MG, UNK
     Route: 048
     Dates: start: 2012, end: 20150718
  3. TEMESTA [Suspect]
     Active Substance: LORAZEPAM
     Indication: ANXIETY
     Dosage: 1 MG, UNK
     Route: 048
     Dates: end: 20150720
  4. VIMPAT [Concomitant]
     Active Substance: LACOSAMIDE
     Indication: PRODUCT USED FOR UNKNOWN INDICATION
     Dosage: 100 MG, UNK
     Route: 048
  5. LEVOTHYROX [Concomitant]
     Active Substance: LEVOTHYROXINE
     Indication: PRODUCT USED FOR UNKNOWN INDICATION
     Dosage: 125 ?G, UNK
     Route: 048
  6. SILODYX [Concomitant]
     Active Substance: SILODOSIN
     Indication: PRODUCT USED FOR UNKNOWN INDICATION
     Route: 048
  7. KEPPRA [Suspect]
     Active Substance: LEVETIRACETAM
     Indication: EPILEPSY
     Dosage: 1500 MG, 2X/DAY (BID)
     Route: 048
  8. ZEBINIX [Concomitant]
     Active Substance: ESLICARBAZEPINE ACETATE
     Indication: PRODUCT USED FOR UNKNOWN INDICATION
     Dosage: 800 MG, UNK
     Route: 048
  9. URBANYL [Concomitant]
     Active Substance: CLOBAZAM
     Indication: PRODUCT USED FOR UNKNOWN INDICATION
     Dosage: 10 MG, UNK
     Route: 048

REACTIONS (9)
  - Nausea [Recovered/Resolved]
  - Decreased appetite [Recovered/Resolved]
  - Dizziness [Recovered/Resolved]
  - Fall [Recovered/Resolved]
  - Feeling drunk [Recovered/Resolved]
  - Hyponatraemia [Recovered/Resolved]
  - Headache [Recovered/Resolved]
  - Asthenia [Recovered/Resolved]
  - Inappropriate antidiuretic hormone secretion [Recovering/Resolving]

NARRATIVE: CASE EVENT DATE: 20150718
